FAERS Safety Report 9901235 (Version 3)
Quarter: 2014Q4

REPORT INFORMATION
  Report Type: Spontaneous
  Country: US (occurrence: US)
  Receive Date: 20140217
  Receipt Date: 20141209
  Transmission Date: 20150529
  Serious: Yes (Hospitalization)
  Sender: FDA-Public Use
  Company Number: US-BAYER-2014-024058

PATIENT
  Age: 30 Year
  Sex: Female
  Weight: 51.25 kg

DRUGS (2)
  1. MIRENA [Suspect]
     Active Substance: LEVONORGESTREL
     Indication: CONTRACEPTION
     Dosage: 20 MCG/24HR, CONT
     Route: 015
     Dates: start: 20101203, end: 20110928
  2. ADDERALL XR [Concomitant]
     Active Substance: AMPHETAMINE ASPARTATE\AMPHETAMINE SULFATE\DEXTROAMPHETAMINE SACCHARATE\DEXTROAMPHETAMINE SULFATE
     Dosage: 15 MG QAM (EVERY MORNING) AND 5 MG 1-2 TABS (TABLETS) Q (AS EVERY) AFTERNOON PRN

REACTIONS (8)
  - Device dislocation [None]
  - Medical device discomfort [None]
  - Scar [None]
  - Procedural pain [None]
  - Injury [None]
  - Pain [None]
  - Uterine perforation [None]
  - Medical device pain [None]

NARRATIVE: CASE EVENT DATE: 20110928
